FAERS Safety Report 23804090 (Version 1)
Quarter: 2024Q2

REPORT INFORMATION
  Report Type: Spontaneous
  Country: US (occurrence: None)
  Receive Date: 20240430
  Receipt Date: 20240430
  Transmission Date: 20240715
  Serious: No
  Sender: FDA-Public Use
  Company Number: None

PATIENT
  Age: 72 Year
  Sex: Male
  Weight: 79 kg

DRUGS (1)
  1. PROCHLORPERAZINE [Suspect]
     Active Substance: PROCHLORPERAZINE
     Indication: Nausea
     Dosage: 10 MG ONCE IM?
     Route: 030
     Dates: start: 20230222, end: 20230222

REACTIONS (3)
  - Dyspnoea [None]
  - Wheezing [None]
  - Anxiety [None]

NARRATIVE: CASE EVENT DATE: 20230223
